FAERS Safety Report 16552257 (Version 6)
Quarter: 2020Q1

REPORT INFORMATION
  Report Type: Spontaneous
  Country: US (occurrence: US)
  Receive Date: 20190710
  Receipt Date: 20200121
  Transmission Date: 20200409
  Serious: Yes (Other)
  Sender: FDA-Public Use
  Company Number: US-PFIZER INC-2019291622

PATIENT
  Age: 74 Year
  Sex: Female
  Weight: 82 kg

DRUGS (1)
  1. LYRICA [Suspect]
     Active Substance: PREGABALIN
     Indication: POST HERPETIC NEURALGIA
     Dosage: 150 MG, 4X/DAY (PER ORAL EVERY 6 HOURS)
     Route: 048

REACTIONS (12)
  - Weight increased [Not Recovered/Not Resolved]
  - Arthropathy [Unknown]
  - Joint swelling [Not Recovered/Not Resolved]
  - Dizziness [Unknown]
  - Asthma [Unknown]
  - Memory impairment [Not Recovered/Not Resolved]
  - Vomiting [Unknown]
  - Neuropathy peripheral [Unknown]
  - Peripheral swelling [Not Recovered/Not Resolved]
  - Myalgia [Not Recovered/Not Resolved]
  - Headache [Unknown]
  - Disturbance in attention [Not Recovered/Not Resolved]
